FAERS Safety Report 16121897 (Version 1)
Quarter: 2019Q1

REPORT INFORMATION
  Report Type: Spontaneous
  Country: FR (occurrence: FR)
  Receive Date: 20190327
  Receipt Date: 20190327
  Transmission Date: 20190418
  Serious: Yes (Other)
  Sender: FDA-Public Use
  Company Number: FR-TEVA-2019-FR-1030338

PATIENT
  Age: 50 Year
  Sex: Female
  Weight: 89 kg

DRUGS (2)
  1. BIPRETERAX [Concomitant]
     Active Substance: INDAPAMIDE\PERINDOPRIL
  2. NAPROXENE [Suspect]
     Active Substance: NAPROXEN
     Indication: PAIN IN EXTREMITY
     Route: 048
     Dates: start: 201602, end: 201602

REACTIONS (3)
  - Erythema [Recovered/Resolved]
  - Palatal oedema [Recovered/Resolved]
  - Lip oedema [Recovered/Resolved]

NARRATIVE: CASE EVENT DATE: 201602
